FAERS Safety Report 9452802 (Version 1)
Quarter: 2013Q3

REPORT INFORMATION
  Report Type: Spontaneous
  Country: US (occurrence: None)
  Receive Date: 20130808
  Receipt Date: 20130808
  Transmission Date: 20140515
  Serious: Yes (Other)
  Sender: FDA-Public Use
  Company Number: None

PATIENT
  Age: 57 None
  Sex: Female

DRUGS (1)
  1. TECFIDERA [Suspect]
     Indication: MULTIPLE SCLEROSIS
     Route: 048
     Dates: start: 20130728, end: 20130803

REACTIONS (6)
  - Heart rate increased [None]
  - Neuralgia [None]
  - Asthenia [None]
  - Crying [None]
  - Insomnia [None]
  - Tachyphrenia [None]
